FAERS Safety Report 25734181 (Version 1)
Quarter: 2025Q3

REPORT INFORMATION
  Report Type: Spontaneous
  Country: US (occurrence: None)
  Receive Date: 20250827
  Receipt Date: 20250827
  Transmission Date: 20251020
  Serious: Yes (Hospitalization)
  Sender: FDA-CTU
  Company Number: None

PATIENT
  Age: 44 Year
  Sex: Female

DRUGS (8)
  1. BRAFTOVI [Suspect]
     Active Substance: ENCORAFENIB
     Indication: Malignant melanoma
     Route: 048
     Dates: start: 20250211
  2. MEKTOVI [Suspect]
     Active Substance: BINIMETINIB
     Indication: Malignant melanoma
     Dates: start: 20250211
  3. PANTOPRAZOLE [Concomitant]
     Active Substance: PANTOPRAZOLE
  4. SUCRALFATE [Concomitant]
     Active Substance: SUCRALFATE
  5. ATIVAN [Concomitant]
     Active Substance: LORAZEPAM
  6. COMPAZ.INE [Concomitant]
  7. LEVOTHYROXINE [Concomitant]
     Active Substance: LEVOTHYROXINE
  8. ONE A DAY WOMEN ACTIVE MB [Concomitant]

REACTIONS (4)
  - COVID-19 [None]
  - Pain [None]
  - Pulmonary thrombosis [None]
  - Intentional dose omission [None]

NARRATIVE: CASE EVENT DATE: 20250821
